FAERS Safety Report 11723792 (Version 3)
Quarter: 2017Q2

REPORT INFORMATION
  Report Type: Report from Study
  Country: CA (occurrence: CA)
  Receive Date: 20151111
  Receipt Date: 20170413
  Transmission Date: 20170829
  Serious: Yes (Other)
  Sender: FDA-Public Use
  Company Number: CA-UCBSA-2015000165

PATIENT
  Age: 57 Year
  Sex: Female

DRUGS (8)
  1. NORTRIPTYLINE [Concomitant]
     Active Substance: NORTRIPTYLINE
     Indication: HEADACHE
     Dosage: UNK
  2. GABAPENTIN. [Concomitant]
     Active Substance: GABAPENTIN
     Indication: FIBROMYALGIA
     Dosage: 1500 MG DAILY DOSE
  3. METHOTREXATE. [Concomitant]
     Active Substance: METHOTREXATE
     Indication: RHEUMATOID ARTHRITIS
     Dosage: 10 MG, WEEKLY (QW)
     Route: 048
  4. FOLIC ACID. [Concomitant]
     Active Substance: FOLIC ACID
     Indication: RHEUMATOID ARTHRITIS
     Dosage: UNK, ONCE DAILY (QD)
     Route: 048
  5. CERTOLIZUMAB PEGOL RA [Suspect]
     Active Substance: CERTOLIZUMAB PEGOL
     Indication: RHEUMATOID ARTHRITIS
     Dosage: 400 MG, EV 2 WEEKS(QOW)
     Route: 058
     Dates: start: 20100612, end: 20100711
  6. CERTOLIZUMAB PEGOL RA [Suspect]
     Active Substance: CERTOLIZUMAB PEGOL
     Dosage: 200 MG, EV 2 WEEKS(QOW)
     Route: 058
     Dates: start: 20100725
  7. NAPROXEN. [Concomitant]
     Active Substance: NAPROXEN
     Indication: RHEUMATOID ARTHRITIS
     Dosage: 500 MG, 2X/DAY (BID)
  8. INDOCID [Concomitant]
     Active Substance: INDOMETHACIN
     Indication: HEADACHE
     Dosage: UNK

REACTIONS (3)
  - Fibromyalgia [Recovered/Resolved]
  - Influenza [Recovered/Resolved]
  - Viral upper respiratory tract infection [Recovered/Resolved]

NARRATIVE: CASE EVENT DATE: 20141221
